FAERS Safety Report 12182975 (Version 2)
Quarter: 2016Q4

REPORT INFORMATION
  Report Type: Spontaneous
  Country: TW (occurrence: TW)
  Receive Date: 20160316
  Receipt Date: 20161206
  Transmission Date: 20170207
  Serious: Yes (Other)
  Sender: FDA-Public Use
  Company Number: TW-AMGEN-TWNSP2016031486

PATIENT
  Age: 64 Year
  Sex: Female

DRUGS (2)
  1. SALAZINE [Concomitant]
     Active Substance: SULFASALAZINE
     Indication: PSORIATIC ARTHROPATHY
     Dosage: 1 DF, 1X/DAY
  2. ENBREL [Suspect]
     Active Substance: ETANERCEPT
     Indication: PSORIATIC ARTHROPATHY
     Dosage: 25 MG, BIW
     Route: 058
     Dates: start: 20131219, end: 20160304

REACTIONS (2)
  - Oesophageal stenosis [Recovering/Resolving]
  - Condition aggravated [Recovering/Resolving]
